FAERS Safety Report 6041760-6 (Version None)
Quarter: 2009Q1

REPORT INFORMATION
  Report Type: 
  Country: None (occurrence: None)
  Receive Date: 20090116
  Receipt Date: 20090106
  Transmission Date: 20090719
  Serious: Yes (Life-Threatening)
  Sender: FDA-Public Use
  Company Number: FR-PFIZER INC-2009154064

PATIENT

DRUGS (9)
  1. TAHOR [Suspect]
     Indication: HYPERCHOLESTEROLAEMIA
     Route: 048
     Dates: start: 20080320, end: 20080402
  2. CARDENSIEL [Suspect]
     Indication: CARDIAC FAILURE
     Route: 048
     Dates: start: 20080320, end: 20080402
  3. FLUTICASONE PROPIONATE [Concomitant]
     Dosage: UNK
     Dates: start: 20080301
  4. FORADIL [Concomitant]
     Dosage: UNK
     Dates: start: 20080301
  5. VENTOLIN [Concomitant]
     Dosage: UNK
     Dates: start: 20080301
  6. LASILIX [Concomitant]
     Dosage: 20 MG, UNK
     Dates: start: 20080301
  7. XYZAL [Concomitant]
     Dosage: UNK
     Dates: start: 20080301
  8. TRIATEC [Concomitant]
     Dosage: UNK
     Dates: start: 20080320
  9. PREVISCAN [Concomitant]
     Dates: start: 20080320

REACTIONS (1)
  - HEPATITIS FULMINANT [None]
